FAERS Safety Report 4434400-0 (Version None)
Quarter: 2004Q3

REPORT INFORMATION
  Report Type: 
  Country: None (occurrence: None)
  Receive Date: 20040825
  Receipt Date: 20040809
  Transmission Date: 20050211
  Serious: Yes (Congenital Anomaly)
  Sender: FDA-Public Use
  Company Number: A03200402650

PATIENT
  Sex: Female

DRUGS (1)
  1. DANOCRINE [Suspect]
     Indication: ENDOMETRIOSIS

REACTIONS (3)
  - BREAST MALFORMATION [None]
  - DRUG EXPOSURE DURING PREGNANCY [None]
  - PREGNANCY [None]
